FAERS Safety Report 26143551 (Version 1)
Quarter: 2025Q4

REPORT INFORMATION
  Report Type: Report from Study
  Country: GB (occurrence: GB)
  Receive Date: 20251211
  Receipt Date: 20251211
  Transmission Date: 20260118
  Serious: Yes (Hospitalization)
  Sender: CELLTRION
  Company Number: GB-CELLTRION INC.-2024GB031010

PATIENT

DRUGS (2)
  1. INFLIXIMAB-DYYB [Suspect]
     Active Substance: INFLIXIMAB-DYYB
     Indication: Crohn^s disease
     Dosage: 240MG EVERY TWO WEEKS
     Route: 058
     Dates: start: 202411
  2. INFLIXIMAB-DYYB [Suspect]
     Active Substance: INFLIXIMAB-DYYB
     Dosage: INJECT TWO PRE-FILLED PENS EVERY TWO WEEKS
     Route: 058
     Dates: start: 20241108

REACTIONS (3)
  - Back disorder [Unknown]
  - Wound [Unknown]
  - Off label use [Unknown]
